FAERS Safety Report 4851022-8 (Version None)
Quarter: 2005Q4

REPORT INFORMATION
  Report Type: 
  Country: None (occurrence: None)
  Receive Date: 20051130
  Receipt Date: 20051013
  Transmission Date: 20060501
  Serious: No
  Sender: FDA-Public Use
  Company Number: FABR-11277

PATIENT
  Sex: Male

DRUGS (2)
  1. FABRAZYME [Suspect]
     Indication: FABRY'S DISEASE
     Dates: start: 20030101
  2. AMITRIPTYLINE HCL [Concomitant]

REACTIONS (5)
  - FATIGUE [None]
  - GASTROINTESTINAL DISORDER [None]
  - PARAESTHESIA [None]
  - RASH [None]
  - TINNITUS [None]
